FAERS Safety Report 16222296 (Version 1)
Quarter: 2019Q2

REPORT INFORMATION
  Report Type: Spontaneous
  Country: US (occurrence: US)
  Receive Date: 20190422
  Receipt Date: 20190422
  Transmission Date: 20190711
  Serious: No
  Sender: FDA-Public Use
  Company Number: US-TEVA-2019-US-1034953

PATIENT
  Sex: Female

DRUGS (1)
  1. MINOXIDIL SOLUTION 2% FOR MEN [Suspect]
     Active Substance: MINOXIDIL
     Indication: ALOPECIA
     Dosage: FORM OF ADMIN: SOLUTION
     Route: 061
     Dates: start: 201901

REACTIONS (3)
  - Drug ineffective [Unknown]
  - Product use issue [Unknown]
  - Product substitution issue [Unknown]

NARRATIVE: CASE EVENT DATE: 201901
